FAERS Safety Report 7487586-8 (Version None)
Quarter: 2011Q2

REPORT INFORMATION
  Report Type: 
  Country: None (occurrence: None)
  Receive Date: 20110518
  Receipt Date: 20110506
  Transmission Date: 20111010
  Serious: Yes (Disabling, Other)
  Sender: FDA-Public Use
  Company Number: US-ELI_LILLY_AND_COMPANY-US201105003064

PATIENT
  Age: 46 Year
  Sex: Male
  Weight: 63 kg

DRUGS (3)
  1. CISPLATIN [Concomitant]
     Dosage: UNK, UNKNOWN
     Route: 065
  2. BEVACIZUMAB [Concomitant]
     Dosage: UNK, UNKNOWN
     Route: 065
  3. ALIMTA [Suspect]
     Indication: NON-SMALL CELL LUNG CANCER
     Dosage: 500 MG/M2, UNKNOWN
     Dates: start: 20110210, end: 20110502

REACTIONS (1)
  - INTERSTITIAL LUNG DISEASE [None]
